FAERS Safety Report 5489349-1 (Version None)
Quarter: 2007Q4

REPORT INFORMATION
  Report Type: 
  Country: None (occurrence: None)
  Receive Date: 20071018
  Receipt Date: 20071008
  Transmission Date: 20080405
  Serious: Yes (Other)
  Sender: FDA-Public Use
  Company Number: JP-BRISTOL-MYERS SQUIBB COMPANY-13939426

PATIENT
  Age: 56 Year
  Sex: Female

DRUGS (1)
  1. PACLITAXEL [Suspect]
     Indication: BREAST CANCER
     Dosage: DRUG READMINISTRED AT LOWER DOSE.
     Route: 042

REACTIONS (1)
  - CUTANEOUS LUPUS ERYTHEMATOSUS [None]
